FAERS Safety Report 8971533 (Version 2)
Quarter: 2013Q1

REPORT INFORMATION
  Report Type: Spontaneous
  Country: US (occurrence: US)
  Receive Date: 20121217
  Receipt Date: 20130215
  Transmission Date: 20140127
  Serious: Yes (Hospitalization, Other)
  Sender: FDA-Public Use
  Company Number: US-PFIZER INC-2012315097

PATIENT
  Age: 79 Year
  Sex: Female

DRUGS (17)
  1. REVATIO [Suspect]
     Indication: PULMONARY EMBOLISM
     Dosage: 20 MG, 2X/DAY
     Route: 048
  2. HYDRALAZINE [Concomitant]
     Indication: CARDIAC DISORDER
     Dosage: 100 MG, 2X/DAY
  3. LOSARTAN [Concomitant]
     Indication: CEREBROVASCULAR ACCIDENT PROPHYLAXIS
     Dosage: 100 MG,DAILY
  4. CREON [Concomitant]
     Indication: PANCREATITIS
     Dosage: 12000 MG,2X/DAY
  5. DIGOXIN [Concomitant]
     Indication: CARDIAC DISORDER
     Dosage: 0.125 MG, DAILY
  6. ADVAIR [Concomitant]
     Dosage: UNK, 2X/DAY
  7. VENTOLIN [Concomitant]
     Dosage: UNKNOWN DOSE ONE PUFF, AS NEEDED
  8. URSODIOL [Concomitant]
     Indication: LIVER DISORDER
     Dosage: 300 MG, DAILY
  9. SPIRIVA [Concomitant]
     Dosage: UNK,DAILY
  10. HYDROCODONE [Concomitant]
     Indication: PAIN
     Dosage: UNK, AS NEEDED
  11. LEVOTHYROXINE [Concomitant]
     Indication: THYROID DISORDER
     Dosage: 0.75 MG, DAILY
     Route: 048
  12. FOSAMAX [Concomitant]
     Indication: OSTEOPOROSIS
     Dosage: 70 MG, DAILY
     Route: 048
  13. PLAVIX [Concomitant]
     Dosage: 75 MG, DAILY
  14. AMLODIPINE [Concomitant]
     Indication: HYPERTENSION
     Dosage: 5 MG, DAILY
     Route: 048
  15. ALBUTEROL [Concomitant]
     Dosage: 90 MG, AS NEEDED
  16. CALCIUM WITH VITAMIN D [Concomitant]
     Dosage: 600 MG, DAILY
  17. VITAMIN C [Concomitant]
     Dosage: UNK

REACTIONS (5)
  - Sepsis [Recovered/Resolved]
  - Wrist fracture [Recovering/Resolving]
  - Weight decreased [Unknown]
  - Malaise [Recovering/Resolving]
  - Off label use [Unknown]
